FAERS Safety Report 15377589 (Version 1)
Quarter: 2018Q3

REPORT INFORMATION
  Report Type: Spontaneous
  Country: JP (occurrence: JP)
  Receive Date: 20180913
  Receipt Date: 20180913
  Transmission Date: 20181010
  Serious: Yes (Other)
  Sender: FDA-Public Use
  Company Number: JP-ASTELLAS-2018US039829

PATIENT
  Age: 7 Decade
  Sex: Female

DRUGS (2)
  1. TARCEVA [Suspect]
     Active Substance: ERLOTINIB HYDROCHLORIDE
     Indication: PRODUCT USED FOR UNKNOWN INDICATION
     Route: 048
     Dates: start: 20171228, end: 20180529
  2. TARCEVA [Suspect]
     Active Substance: ERLOTINIB HYDROCHLORIDE
     Route: 048
     Dates: start: 20180614

REACTIONS (3)
  - Paronychia [Recovered/Resolved with Sequelae]
  - Cutaneous symptom [Recovered/Resolved with Sequelae]
  - Rash [Unknown]

NARRATIVE: CASE EVENT DATE: 20180406
